FAERS Safety Report 19998712 (Version 6)
Quarter: 2022Q2

REPORT INFORMATION
  Report Type: Report from Study
  Country: US (occurrence: US)
  Receive Date: 20211026
  Receipt Date: 20220602
  Transmission Date: 20220721
  Serious: Yes (Other)
  Sender: FDA-Public Use
  Company Number: US-GLAXOSMITHKLINE-US2021GSK215790

PATIENT

DRUGS (18)
  1. DOSTARLIMAB [Suspect]
     Active Substance: DOSTARLIMAB
     Indication: Endometrial cancer recurrent
     Dosage: 500 MG
     Dates: start: 20200916, end: 20200916
  2. DOSTARLIMAB [Suspect]
     Active Substance: DOSTARLIMAB
     Dosage: 1000 MG
     Dates: start: 20210715, end: 20210715
  3. DOSTARLIMAB [Suspect]
     Active Substance: DOSTARLIMAB
     Dosage: UNK
     Dates: start: 20210826, end: 20210826
  4. DOSTARLIMAB [Suspect]
     Active Substance: DOSTARLIMAB
     Dosage: UNK
     Dates: start: 20211007, end: 20211007
  5. CARBOPLATIN [Suspect]
     Active Substance: CARBOPLATIN
     Indication: Endometrial cancer recurrent
     Dosage: 351 MG
     Route: 042
     Dates: start: 20200916, end: 20200916
  6. CARBOPLATIN [Suspect]
     Active Substance: CARBOPLATIN
     Dosage: 351 MG
     Route: 042
     Dates: start: 20210107, end: 20210107
  7. PACLITAXEL [Suspect]
     Active Substance: PACLITAXEL
     Indication: Endometrial cancer recurrent
     Dosage: 175 MG/M2
     Route: 042
     Dates: start: 20200916, end: 20200916
  8. PACLITAXEL [Suspect]
     Active Substance: PACLITAXEL
     Dosage: 290 MG
     Route: 042
     Dates: start: 20200916, end: 20200916
  9. PACLITAXEL [Suspect]
     Active Substance: PACLITAXEL
     Dosage: 175 MG/M2
     Route: 042
     Dates: start: 20201007, end: 20201007
  10. PACLITAXEL [Suspect]
     Active Substance: PACLITAXEL
     Dosage: 290 MG
     Route: 042
     Dates: start: 20201029, end: 20201029
  11. PACLITAXEL [Suspect]
     Active Substance: PACLITAXEL
     Dosage: 135 MG/M2
     Route: 042
     Dates: start: 20201119, end: 20201119
  12. PACLITAXEL [Suspect]
     Active Substance: PACLITAXEL
     Dosage: 135 MG/M2
     Route: 042
     Dates: start: 20201210, end: 20201210
  13. PACLITAXEL [Suspect]
     Active Substance: PACLITAXEL
     Dosage: 225 MG
     Route: 042
     Dates: start: 20210107, end: 20210107
  14. FLUTICASONE [Concomitant]
     Active Substance: FLUTICASONE
     Indication: Seasonal allergy
     Dosage: 50 UG, QD
     Route: 055
     Dates: start: 2007
  15. HYDROCHLOROTHIAZIDE [Concomitant]
     Active Substance: HYDROCHLOROTHIAZIDE
     Indication: Hypertension
     Dosage: 25 MG, QD
     Route: 048
     Dates: start: 2002
  16. VITAMIN B12 [Concomitant]
     Active Substance: CYANOCOBALAMIN
     Indication: Supplementation therapy
     Dosage: 500 UG, QD
     Route: 048
     Dates: start: 202007
  17. ZYRTEC [Concomitant]
     Active Substance: CETIRIZINE HYDROCHLORIDE
     Indication: Seasonal allergy
     Dosage: 10 MG, PRN
     Route: 048
     Dates: start: 2007
  18. LUMIFY [Concomitant]
     Active Substance: BRIMONIDINE TARTRATE
     Indication: Seasonal allergy
     Dosage: 1 GTT, PRN
     Route: 047
     Dates: start: 2018

REACTIONS (1)
  - Keratitis [Not Recovered/Not Resolved]

NARRATIVE: CASE EVENT DATE: 20210719
